FAERS Safety Report 6802830-5 (Version None)
Quarter: 2010Q2

REPORT INFORMATION
  Report Type: 
  Country: None (occurrence: None)
  Receive Date: 20100628
  Receipt Date: 20100616
  Transmission Date: 20101027
  Serious: Yes (Hospitalization)
  Sender: FDA-Public Use
  Company Number: PHHY2008BR11091

PATIENT
  Sex: Female
  Weight: 67 kg

DRUGS (3)
  1. FORASEQ [Suspect]
     Indication: ASTHMA
     Dosage: QD
     Dates: start: 20030101, end: 20080201
  2. FORASEQ [Suspect]
     Dosage: UNK
     Dates: start: 20080612
  3. BEROTEC [Concomitant]
     Indication: ASTHMA
     Dosage: QD

REACTIONS (4)
  - ASTHMA [None]
  - CAESAREAN SECTION [None]
  - DRUG EXPOSURE DURING PREGNANCY [None]
  - PREMATURE LABOUR [None]
